FAERS Safety Report 7035181-7 (Version None)
Quarter: 2010Q4

REPORT INFORMATION
  Report Type: 
  Country: None (occurrence: None)
  Receive Date: 20101008
  Receipt Date: 20100928
  Transmission Date: 20110411
  Serious: Yes (Other)
  Sender: FDA-Public Use
  Company Number: US-BAYER-201035901NA

PATIENT
  Sex: Female

DRUGS (4)
  1. YASMIN [Suspect]
     Indication: PRODUCT USED FOR UNKNOWN INDICATION
     Route: 048
     Dates: start: 20030901, end: 20031201
  2. YASMIN [Suspect]
     Route: 048
     Dates: start: 20041201, end: 20061101
  3. YASMIN [Suspect]
     Route: 048
     Dates: start: 20071201, end: 20080601
  4. OCELLA [Suspect]
     Indication: PRODUCT USED FOR UNKNOWN INDICATION
     Route: 048
     Dates: start: 20080701, end: 20081001

REACTIONS (1)
  - CHOLELITHIASIS [None]
